FAERS Safety Report 12961637 (Version 1)
Quarter: 2016Q4

REPORT INFORMATION
  Report Type: Spontaneous
  Country: FR (occurrence: FR)
  Receive Date: 20161121
  Receipt Date: 20161121
  Transmission Date: 20170207
  Serious: No
  Sender: FDA-Public Use
  Company Number: FR-B. BRAUN MEDICAL INC.-1059862

PATIENT
  Sex: Male

DRUGS (3)
  1. NUTRILIPID I.V. FAT EMULSION [Suspect]
     Active Substance: SOYBEAN OIL
     Dates: start: 20160425, end: 20160426
  2. PEDIAVEN [Concomitant]
  3. VITAMINOLACT [Concomitant]

REACTIONS (4)
  - Incorrect drug administration rate [None]
  - Hypertriglyceridaemia [Unknown]
  - Device computer issue [None]
  - Medication error [Unknown]
